FAERS Safety Report 6695908-0 (Version None)
Quarter: 2010Q2

REPORT INFORMATION
  Report Type: 
  Country: None (occurrence: None)
  Receive Date: 20100407
  Receipt Date: 20090302
  Transmission Date: 20101027
  Serious: Yes (Hospitalization)
  Sender: FDA-Public Use
  Company Number: KV200900279

PATIENT
  Age: 72 Year
  Sex: Female

DRUGS (12)
  1. PROPAFENONE HYDROCHLORIDE [Suspect]
     Indication: CARDIAC DISORDER
     Dosage: 150 MG, BID, ORAL
     Route: 048
     Dates: start: 20000101, end: 20080801
  2. OMEPRAZOLE [Concomitant]
  3. ALENDRONATE SODIUM [Concomitant]
  4. ENALAPRIL MALEATE [Concomitant]
  5. VERAPAMIL [Concomitant]
  6. VYTORIN [Concomitant]
  7. POTASSIUM CHLORIDE [Concomitant]
  8. ARIMIDEX [Concomitant]
  9. LASIX [Concomitant]
  10. PRO-AIR (PROCATEROL HYDROCHLORIDE) [Concomitant]
  11. HYDROXYZINE [Concomitant]
  12. METFORMIN HCL [Concomitant]

REACTIONS (2)
  - ATRIAL FIBRILLATION [None]
  - DYSPNOEA [None]
